FAERS Safety Report 6632330-7 (Version None)
Quarter: 2010Q1

REPORT INFORMATION
  Report Type: 
  Country: None (occurrence: None)
  Receive Date: 20100312
  Receipt Date: 20100308
  Transmission Date: 20100710
  Serious: Yes (Hospitalization)
  Sender: FDA-Public Use
  Company Number: B0638196A

PATIENT
  Age: 83 Year
  Sex: Female

DRUGS (3)
  1. AUGMENTIN '125' [Suspect]
     Route: 048
     Dates: start: 20091201
  2. FURADANTINE [Suspect]
     Route: 048
     Dates: start: 20091201
  3. OFLOCET [Suspect]
     Route: 048
     Dates: start: 20100101

REACTIONS (4)
  - CLOSTRIDIUM COLITIS [None]
  - DIARRHOEA [None]
  - MALAISE [None]
  - PYREXIA [None]
